FAERS Safety Report 5074761-5 (Version None)
Quarter: 2006Q3

REPORT INFORMATION
  Report Type: 
  Country: None (occurrence: None)
  Receive Date: 20060807
  Receipt Date: 20050920
  Transmission Date: 20061208
  Serious: Yes (Other)
  Sender: FDA-Public Use
  Company Number: 11010

PATIENT
  Age: 78 Year
  Sex: Female

DRUGS (4)
  1. FLUOROURACIL [Suspect]
     Indication: COLON CANCER STAGE III
     Dosage: 550 MG WEEKLY IV
     Route: 042
     Dates: start: 20050222, end: 20050502
  2. FLUOROURACIL [Suspect]
     Indication: COLON CANCER STAGE III
     Dosage: 500 MG WEEKLY IV
     Route: 042
     Dates: start: 20050503, end: 20050921
  3. FOLINIC ACID [Suspect]
  4. IMODIUM [Concomitant]

REACTIONS (1)
  - CEREBELLAR SYNDROME [None]
